FAERS Safety Report 4560594-2 (Version None)
Quarter: 2005Q1

REPORT INFORMATION
  Report Type: 
  Country: None (occurrence: None)
  Receive Date: 20050125
  Receipt Date: 20050121
  Transmission Date: 20050727
  Serious: Yes (Disabling)
  Sender: FDA-Public Use
  Company Number: NO-MERCK-0501NOR00033

PATIENT
  Age: 55 Year
  Sex: Female

DRUGS (5)
  1. FOSAMAX [Suspect]
     Indication: OSTEOPOROSIS
     Route: 048
     Dates: start: 20041007, end: 20041021
  2. ESTRADIOL AND NORETHINDRONE ACETATE [Concomitant]
     Route: 048
  3. ZOLMITRIPTAN [Concomitant]
     Route: 048
  4. LEVOTHYROXINE SODIUM [Concomitant]
     Indication: HYPOTHYROIDISM
     Route: 048
  5. LIOTHYRONINE SODIUM [Concomitant]
     Indication: HYPOTHYROIDISM
     Route: 048

REACTIONS (4)
  - DRUG INEFFECTIVE [None]
  - ROTATOR CUFF SYNDROME [None]
  - TENDONITIS [None]
  - TENOSYNOVITIS [None]
